FAERS Safety Report 8925512 (Version 1)
Quarter: 2012Q4

REPORT INFORMATION
  Report Type: Spontaneous
  Country: US (occurrence: None)
  Receive Date: 20121126
  Receipt Date: 20121126
  Transmission Date: 20130627
  Serious: Yes (Life-Threatening, Hospitalization)
  Sender: FDA-Public Use
  Company Number: None

PATIENT
  Age: 5 Year
  Sex: Female
  Weight: 21.77 kg

DRUGS (1)
  1. ONFI [Suspect]
     Indication: SEIZURES
     Dosage: 2.5mg two times a day po
     Route: 048
     Dates: start: 20121030, end: 20121114

REACTIONS (1)
  - Hypothermia [None]
